FAERS Safety Report 12083738 (Version 7)
Quarter: 2016Q4

REPORT INFORMATION
  Report Type: Spontaneous
  Country: US (occurrence: US)
  Receive Date: 20160217
  Receipt Date: 20161221
  Transmission Date: 20170206
  Serious: Yes (Other)
  Sender: FDA-Public Use
  Company Number: US-PFIZER INC-2016088327

PATIENT
  Age: 50 Year
  Sex: Female
  Weight: 121.1 kg

DRUGS (5)
  1. LYRICA [Suspect]
     Active Substance: PREGABALIN
     Indication: DIABETIC NEUROPATHY
     Dosage: 200 MG, 2X/DAY
     Route: 048
     Dates: start: 2007
  2. LYRICA [Suspect]
     Active Substance: PREGABALIN
     Dosage: 225 MG, 2X/DAY (75MG CAPSULES AND SHE TAKES 3 CAPSULES)
     Route: 048
  3. DUROGESIC [Concomitant]
     Active Substance: FENTANYL
     Dosage: 75 MCG/HR EVERY 72 HOURS (CHANGED EVERY 3 DAYS)
     Dates: start: 2007
  4. LYRICA [Suspect]
     Active Substance: PREGABALIN
     Dosage: 200 MG, 2X/DAY
     Route: 048
     Dates: start: 20160106
  5. LYRICA [Suspect]
     Active Substance: PREGABALIN
     Dosage: 200 MG, 2X/DAY
     Route: 048
     Dates: start: 2011

REACTIONS (14)
  - Intentional product misuse [Unknown]
  - Arthralgia [Not Recovered/Not Resolved]
  - Mental disorder [Unknown]
  - Pain in extremity [Not Recovered/Not Resolved]
  - Prescribed overdose [Unknown]
  - Drug dispensing error [Unknown]
  - Temporomandibular joint syndrome [Unknown]
  - Activities of daily living impaired [Unknown]
  - Visual acuity reduced [Unknown]
  - Hypoacusis [Not Recovered/Not Resolved]
  - Diabetes mellitus [Unknown]
  - Condition aggravated [Unknown]
  - Mental impairment [Unknown]
  - Anxiety [Unknown]

NARRATIVE: CASE EVENT DATE: 2007
